FAERS Safety Report 10476124 (Version 2)
Quarter: 2014Q4

REPORT INFORMATION
  Report Type: Spontaneous
  Country: US (occurrence: US)
  Receive Date: 20140925
  Receipt Date: 20141114
  Transmission Date: 20150528
  Serious: Yes (Other)
  Sender: FDA-Public Use
  Company Number: US-FRI-1000070900

PATIENT
  Sex: Male

DRUGS (4)
  1. TUDORZA PRESSAIR [Suspect]
     Active Substance: ACLIDINIUM BROMIDE
     Indication: CHRONIC OBSTRUCTIVE PULMONARY DISEASE
     Dosage: 800MCG
     Route: 055
     Dates: start: 201409, end: 20140919
  2. METOPROLOL [Concomitant]
     Active Substance: METOPROLOL
  3. ATORVASTATIN [Concomitant]
     Active Substance: ATORVASTATIN
     Indication: BLOOD CHOLESTEROL INCREASED
  4. DIGOXIN. [Concomitant]
     Active Substance: DIGOXIN

REACTIONS (12)
  - Urinary retention [Unknown]
  - Flank pain [Unknown]
  - Chromaturia [Unknown]
  - Fatigue [Unknown]
  - Dysuria [Unknown]
  - Dizziness [Recovered/Resolved]
  - Weight increased [Unknown]
  - Arrhythmia [Unknown]
  - Renal impairment [Unknown]
  - Asthenia [Unknown]
  - Urine output decreased [Unknown]
  - Blood pressure abnormal [Unknown]

NARRATIVE: CASE EVENT DATE: 201409
